FAERS Safety Report 4628100-1 (Version None)
Quarter: 2005Q2

REPORT INFORMATION
  Report Type: 
  Country: None (occurrence: None)
  Receive Date: 20050406
  Receipt Date: 20050404
  Transmission Date: 20051028
  Serious: Yes (Death, Hospitalization)
  Sender: FDA-Public Use
  Company Number: 120

PATIENT
  Age: 65 Year
  Sex: Female
  Weight: 49 kg

DRUGS (3)
  1. MELPHALAN [Suspect]
     Indication: MULTIPLE MYELOMA
     Dosage: 200MG SINGLE DOSE
     Route: 042
     Dates: start: 20041111
  2. THALIDOMIDE [Suspect]
     Indication: MULTIPLE MYELOMA
     Dosage: 200MG PER DAY
     Route: 048
     Dates: start: 20041011, end: 20041014
  3. ANTIHYPERTENSIVE (UNSPECIFIED) [Concomitant]

REACTIONS (23)
  - ANOREXIA [None]
  - BACTERAEMIA [None]
  - BRAIN DEATH [None]
  - CARDIOVASCULAR DECONDITIONING [None]
  - CLOSTRIDIUM COLITIS [None]
  - CYTOMEGALOVIRUS INFECTION [None]
  - DEHYDRATION [None]
  - DEPRESSION [None]
  - DIARRHOEA [None]
  - DIZZINESS [None]
  - FAILURE TO THRIVE [None]
  - FALL [None]
  - HEAD INJURY [None]
  - HEADACHE [None]
  - HYPERTENSION [None]
  - HYPOCALCAEMIA [None]
  - NAUSEA [None]
  - NEPHROLITHIASIS [None]
  - OEDEMA PERIPHERAL [None]
  - PANCYTOPENIA [None]
  - SPLENOMEGALY [None]
  - SUBDURAL HAEMORRHAGE [None]
  - VOMITING [None]
